FAERS Safety Report 24285506 (Version 1)
Quarter: 2024Q3

REPORT INFORMATION
  Report Type: Spontaneous
  Country: US (occurrence: None)
  Receive Date: 20240902
  Receipt Date: 20240902
  Transmission Date: 20241017
  Serious: Yes (Hospitalization)
  Sender: Public
  Company Number: None

PATIENT
  Sex: Female

DRUGS (2)
  1. ICATIBANT ACETATE [Suspect]
     Active Substance: ICATIBANT ACETATE
     Indication: Complement deficiency disease
     Dosage: 30MG AS NEEDED UNDER THE SKIN
     Route: 058
     Dates: start: 201911
  2. EPINEPHRINE AUTO-INJ [Concomitant]

REACTIONS (1)
  - Abdominal distension [None]
